FAERS Safety Report 6862617-4 (Version None)
Quarter: 2010Q3

REPORT INFORMATION
  Report Type: 
  Country: None (occurrence: None)
  Receive Date: 20100721
  Receipt Date: 20100713
  Transmission Date: 20110219
  Serious: Yes (Other)
  Sender: FDA-Public Use
  Company Number: US-BAYER-201027923NA

PATIENT
  Age: 31 Year
  Sex: Female

DRUGS (2)
  1. CIPRO [Suspect]
     Indication: DISBACTERIOSIS
     Dosage: TOTAL DAILY DOSE: 1000 MG  UNIT DOSE: 500 MG
     Route: 048
     Dates: start: 20090101, end: 20091118
  2. LISINOPRIL [Concomitant]

REACTIONS (4)
  - BURSITIS [None]
  - TENDON RUPTURE [None]
  - TENDONITIS [None]
  - TOOTH DEPOSIT [None]
